FAERS Safety Report 16588972 (Version 1)
Quarter: 2019Q3

REPORT INFORMATION
  Report Type: Spontaneous
  Country: CA (occurrence: CA)
  Receive Date: 20190718
  Receipt Date: 20190718
  Transmission Date: 20191004
  Serious: Yes (Other)
  Sender: FDA-Public Use
  Company Number: CA-TEVA-2019-CA-1078201

PATIENT
  Age: 33 Year
  Sex: Female
  Weight: 70 kg

DRUGS (3)
  1. NIFEDIPINE. [Suspect]
     Active Substance: NIFEDIPINE
     Indication: HYPERTENSION
     Route: 048
     Dates: start: 20170308
  2. VENLAFAXINE [Suspect]
     Active Substance: VENLAFAXINE HYDROCHLORIDE
     Indication: DEPRESSION
     Route: 048
     Dates: start: 2015
  3. JINARC (TOLVAPTAN) [Suspect]
     Active Substance: TOLVAPTAN
     Indication: CONGENITAL CYSTIC KIDNEY DISEASE
     Dosage: 45MG + 15MG
     Dates: start: 20160621, end: 20171107

REACTIONS (9)
  - Blood creatinine increased [Not Recovered/Not Resolved]
  - Maternal exposure during pregnancy [Unknown]
  - Human chorionic gonadotropin positive [Unknown]
  - Blood uric acid increased [Recovered/Resolved]
  - Red blood cell count decreased [Unknown]
  - White blood cell count increased [Unknown]
  - Renal impairment [Unknown]
  - Haemoglobin decreased [Unknown]
  - Live birth [Unknown]

NARRATIVE: CASE EVENT DATE: 20171107
